FAERS Safety Report 9048900 (Version 1)
Quarter: 2013Q1

REPORT INFORMATION
  Report Type: Spontaneous
  Country: US (occurrence: None)
  Receive Date: 20130116
  Receipt Date: 20130116
  Transmission Date: 20140127
  Serious: Yes (Death)
  Sender: FDA-Public Use
  Company Number: UTC-027755

PATIENT
  Age: 80 Year
  Sex: Male

DRUGS (1)
  1. REMODULIN [Suspect]
     Indication: PULMONARY ARTERIAL HYPERTENSION
     Dosage: 5.76 UG/KG (0.0004 UG/KG,1 IN 1 MIN),SUBCUTANEOUS
     Route: 058
     Dates: start: 20120929, end: 2012

REACTIONS (1)
  - Death [None]
